FAERS Safety Report 18673392 (Version 1)
Quarter: 2020Q4

REPORT INFORMATION
  Report Type: Spontaneous
  Country: US (occurrence: US)
  Receive Date: 20201229
  Receipt Date: 20201229
  Transmission Date: 20210114
  Serious: No
  Sender: FDA-Public Use
  Company Number: US-ASTRAZENECA-2020SF61889

PATIENT
  Sex: Female
  Weight: 68 kg

DRUGS (2)
  1. SPIRIVA [Concomitant]
     Active Substance: TIOTROPIUM BROMIDE MONOHYDRATE
     Indication: PYROMANIA
     Dosage: ONCE DAY, 2 PUFFS
     Route: 055
  2. SYMBICORT [Suspect]
     Active Substance: BUDESONIDE\FORMOTEROL FUMARATE DIHYDRATE
     Indication: ASTHMA
     Dosage: 160/4.5 MCG,2 PUFFS,TWO TIMES A DAY
     Route: 055

REACTIONS (4)
  - Wrong technique in device usage process [Unknown]
  - Product dose omission issue [Unknown]
  - Hypersensitivity [Unknown]
  - Device malfunction [Unknown]
